FAERS Safety Report 8647064 (Version 2)
Quarter: 2013Q2

REPORT INFORMATION
  Report Type: Report from Study
  Country: MX (occurrence: MX)
  Receive Date: 20120703
  Receipt Date: 20130429
  Transmission Date: 20140414
  Serious: Yes (Death)
  Sender: FDA-Public Use
  Company Number: PHHY2012MX056470

PATIENT
  Age: 84 Year
  Sex: Female

DRUGS (1)
  1. EXFORGE HCT [Suspect]
     Indication: HYPERTENSION
     Dosage: 1 DF (320MG VALS/10 MG AMLO/25 MG HCTZ), DAILY
     Dates: start: 201109

REACTIONS (1)
  - Myocardial infarction [Fatal]
